FAERS Safety Report 5942142-5 (Version None)
Quarter: 2008Q4

REPORT INFORMATION
  Report Type: 
  Country: None (occurrence: None)
  Receive Date: 20081104
  Receipt Date: 20081104
  Transmission Date: 20090506
  Serious: Yes (Death, Life-Threatening)
  Sender: FDA-Public Use
  Company Number: None

PATIENT
  Sex: Female
  Weight: 63 kg

DRUGS (3)
  1. PEG-INTRON [Suspect]
     Dosage: 0; ONCE WEEKLY; SUBCUTANEOUS INJECTION:
     Dates: start: 20080609, end: 20080922
  2. REBETOL [Suspect]
     Dosage: 0; DAILY; ORAL-CAPSULES:
     Route: 048
     Dates: start: 20080609, end: 20080924
  3. PROCRIT [Suspect]
     Dosage: 0; ; SUBCUTANEOUS INJECTION;
     Dates: start: 20080609, end: 20080922

REACTIONS (9)
  - ATRIAL FIBRILLATION [None]
  - BRADYCARDIA [None]
  - CARDIAC ARREST [None]
  - CONTINUOUS HAEMODIAFILTRATION [None]
  - CULTURE WOUND POSITIVE [None]
  - HEPATIC ARTERY STENOSIS [None]
  - HYPOTENSION [None]
  - PULMONARY OEDEMA [None]
  - RENAL FAILURE [None]
